FAERS Safety Report 16251726 (Version 1)
Quarter: 2019Q2

REPORT INFORMATION
  Report Type: Spontaneous
  Country: US (occurrence: US)
  Receive Date: 20190428
  Receipt Date: 20190428
  Transmission Date: 20190711
  Serious: Yes (Other)
  Sender: FDA-Public Use
  Company Number: None

PATIENT
  Age: 8 Year
  Sex: Female
  Weight: 28.35 kg

DRUGS (4)
  1. AMOXICILLIN FOR ORAL SUSPENSION USP 400MG/5ML [Suspect]
     Active Substance: AMOXICILLIN
     Indication: PHARYNGITIS STREPTOCOCCAL
     Route: 048
     Dates: start: 20190424, end: 20190427
  2. GUANFACINE. [Concomitant]
     Active Substance: GUANFACINE
  3. ALL ARTIFICIAL DYES [Suspect]
     Active Substance: UNSPECIFIED INGREDIENT
     Indication: PRODUCT FORMULATION ISSUE
     Route: 048
     Dates: start: 20130401, end: 20190428
  4. PROZAC [Concomitant]
     Active Substance: FLUOXETINE HYDROCHLORIDE

REACTIONS (4)
  - Reaction to colouring [None]
  - Intentional self-injury [None]
  - Aggression [None]
  - Anger [None]

NARRATIVE: CASE EVENT DATE: 20190427
